FAERS Safety Report 16397481 (Version 2)
Quarter: 2019Q4

REPORT INFORMATION
  Report Type: Spontaneous
  Country: ES (occurrence: ES)
  Receive Date: 20190606
  Receipt Date: 20191005
  Transmission Date: 20200122
  Serious: Yes (Life-Threatening, Other)
  Sender: FDA-Public Use
  Company Number: ES-SUN PHARMACEUTICAL INDUSTRIES LTD-2019R1-209776

PATIENT
  Age: 43 Year
  Sex: Female

DRUGS (5)
  1. ELONTRIL [Concomitant]
     Active Substance: BUPROPION HYDROCHLORIDE
     Indication: AGITATION
  2. METFORMIN [Concomitant]
     Active Substance: METFORMIN HYDROCHLORIDE
     Indication: AGITATION
     Dosage: UNK
     Route: 065
  3. LITHIUM. [Suspect]
     Active Substance: LITHIUM
     Indication: BIPOLAR DISORDER
     Dosage: UNK
     Route: 065
  4. ARIPIPRAZOLE. [Concomitant]
     Active Substance: ARIPIPRAZOLE
     Indication: AGITATION
     Route: 065
  5. SIMVASTATIN. [Concomitant]
     Active Substance: SIMVASTATIN
     Indication: AGITATION
     Dosage: UNK
     Route: 065

REACTIONS (3)
  - Depressed level of consciousness [Unknown]
  - Nephrogenic diabetes insipidus [Unknown]
  - Hypernatraemia [Recovered/Resolved]
